FAERS Safety Report 22276116 (Version 3)
Quarter: 2023Q4

REPORT INFORMATION
  Report Type: Report from Study
  Country: CO (occurrence: CO)
  Receive Date: 20230502
  Receipt Date: 20231202
  Transmission Date: 20240110
  Serious: Yes (Hospitalization, Other)
  Sender: FDA-Public Use
  Company Number: CO-ABBVIE-4748484

PATIENT
  Sex: Female
  Weight: 46 kg

DRUGS (7)
  1. ZEMPLAR [Suspect]
     Active Substance: PARICALCITOL
     Indication: Hyperparathyroidism secondary
     Dosage: FORM STRENGTH: 5 MICROGRAM?FREQUENCY TEXT: POST-DIALYSIS
     Route: 042
     Dates: start: 20190510, end: 20221010
  2. ZEMPLAR [Suspect]
     Active Substance: PARICALCITOL
     Indication: Hyperparathyroidism secondary
     Dosage: FORM STRENGTH: 5 MICROGRAM?FREQUENCY TEXT: POST-DIALYSIS
     Route: 042
     Dates: end: 20231009
  3. LOSARTAN [Concomitant]
     Active Substance: LOSARTAN
     Indication: Hypertension
     Route: 048
  4. Prazosina [Concomitant]
     Indication: Hypertension
     Route: 048
  5. AMLODIPINE [Concomitant]
     Active Substance: AMLODIPINE BESYLATE
     Indication: Hypertension
     Dosage: FREQUENCY TEXT: EVERY 8 HOURS
     Route: 048
  6. CLONIDINE [Concomitant]
     Active Substance: CLONIDINE
     Indication: Hypertension
     Route: 048
  7. MINOXIDIL [Concomitant]
     Active Substance: MINOXIDIL
     Indication: Hypertension
     Route: 048

REACTIONS (20)
  - Cardiovascular disorder [Recovering/Resolving]
  - Dyspnoea [Recovering/Resolving]
  - Haemorrhage [Recovering/Resolving]
  - Pneumonia [Not Recovered/Not Resolved]
  - Respiratory disorder [Recovering/Resolving]
  - Venous occlusion [Recovering/Resolving]
  - Muscle spasms [Not Recovered/Not Resolved]
  - Cardiac failure [Recovering/Resolving]
  - Haemoglobin decreased [Not Recovered/Not Resolved]
  - Discouragement [Recovering/Resolving]
  - Cough [Not Recovered/Not Resolved]
  - Asthenia [Recovering/Resolving]
  - Device issue [Not Recovered/Not Resolved]
  - Cardiac failure [Recovered/Resolved]
  - Apnoea [Not Recovered/Not Resolved]
  - Pulmonary oedema [Recovering/Resolving]
  - Haemoglobin abnormal [Recovering/Resolving]
  - Asphyxia [Not Recovered/Not Resolved]
  - Feeling abnormal [Recovering/Resolving]
  - Fatigue [Recovering/Resolving]

NARRATIVE: CASE EVENT DATE: 20210101
